FAERS Safety Report 17069016 (Version 1)
Quarter: 2019Q4

REPORT INFORMATION
  Report Type: Spontaneous
  Country: US (occurrence: US)
  Receive Date: 20191025
  Receipt Date: 20191025
  Transmission Date: 20200122
  Serious: No
  Sender: FDA-Public Use
  Company Number: None

PATIENT
  Age: 79 Year
  Sex: Female

DRUGS (1)
  1. SAMSCA [Suspect]
     Active Substance: TOLVAPTAN
     Dosage: ?          OTHER FREQUENCY:OTHER;?
     Route: 048

REACTIONS (4)
  - Inappropriate schedule of product administration [None]
  - Insurance issue [None]
  - Product availability issue [None]
  - Therapy cessation [None]

NARRATIVE: CASE EVENT DATE: 20191025
